FAERS Safety Report 5920362-3 (Version None)
Quarter: 2008Q4

REPORT INFORMATION
  Report Type: 
  Country: None (occurrence: None)
  Receive Date: 20081016
  Receipt Date: 20081008
  Transmission Date: 20090506
  Serious: Yes (Hospitalization)
  Sender: FDA-Public Use
  Company Number: PHHY2008IT12267

PATIENT
  Sex: Female

DRUGS (1)
  1. TOLEP [Suspect]
     Indication: PARTIAL SEIZURES
     Dosage: 600 MG/DAY
     Route: 048
     Dates: start: 20080520, end: 20080530

REACTIONS (8)
  - ALANINE AMINOTRANSFERASE INCREASED [None]
  - ASPARTATE AMINOTRANSFERASE INCREASED [None]
  - HAEMOLYSIS [None]
  - LEUKOPENIA [None]
  - LIVER DISORDER [None]
  - PLATELET COUNT DECREASED [None]
  - PYREXIA [None]
  - SYSTEMIC LUPUS ERYTHEMATOSUS RASH [None]
